FAERS Safety Report 14915789 (Version 3)
Quarter: 2018Q2

REPORT INFORMATION
  Report Type: Report from Study
  Country: DE (occurrence: DE)
  Receive Date: 20180518
  Receipt Date: 20180604
  Transmission Date: 20180711
  Serious: Yes (Hospitalization)
  Sender: FDA-Public Use
  Company Number: DE-TAKEDA-2018TUS017292

PATIENT
  Sex: Male

DRUGS (1)
  1. VEDOLIZUMAB [Suspect]
     Active Substance: VEDOLIZUMAB
     Indication: PRODUCT USED FOR UNKNOWN INDICATION
     Dosage: UNK
     Route: 042
     Dates: start: 20161010, end: 20171213

REACTIONS (1)
  - Ileal stenosis [Recovered/Resolved with Sequelae]

NARRATIVE: CASE EVENT DATE: 20171016
